FAERS Safety Report 8262793-5 (Version None)
Quarter: 2012Q2

REPORT INFORMATION
  Report Type: 
  Country: None (occurrence: None)
  Receive Date: 20120405
  Receipt Date: 20120326
  Transmission Date: 20120825
  Serious: Yes (Hospitalization, Other)
  Sender: FDA-Public Use
  Company Number: DK-JNJFOC-20110105841

PATIENT
  Age: 33 Year
  Sex: Female

DRUGS (4)
  1. TRAMADOL HCL [Suspect]
     Indication: HEADACHE
     Route: 065
  2. ACETAMINOPHEN [Suspect]
     Route: 065
  3. ACETAMINOPHEN [Suspect]
     Indication: HEADACHE
     Route: 065
  4. MORPHINE [Suspect]
     Indication: HEADACHE
     Route: 065

REACTIONS (5)
  - HEADACHE [None]
  - OVERDOSE [None]
  - TOXICITY TO VARIOUS AGENTS [None]
  - DRUG WITHDRAWAL SYNDROME [None]
  - DRUG ABUSE [None]
